FAERS Safety Report 13627961 (Version 1)
Quarter: 2017Q2

REPORT INFORMATION
  Report Type: Spontaneous
  Country: US (occurrence: US)
  Receive Date: 20170608
  Receipt Date: 20170608
  Transmission Date: 20170830
  Serious: No
  Sender: FDA-Public Use
  Company Number: US-PERRIGO-16US023033

PATIENT
  Age: 60 Year
  Sex: Male
  Weight: 83.9 kg

DRUGS (3)
  1. MINOXIDIL. [Suspect]
     Active Substance: MINOXIDIL
     Indication: ALOPECIA
     Dosage: 1/2 CAPFUL, BID
     Route: 061
     Dates: start: 201605, end: 20161213
  2. MINOXIDIL. [Suspect]
     Active Substance: MINOXIDIL
     Dosage: 1/2 CAPFUL, BID
     Route: 061
     Dates: start: 20161214, end: 20161217
  3. MINOXIDIL. [Suspect]
     Active Substance: MINOXIDIL
     Dosage: 1/2 CAPFUL, BID
     Route: 061
     Dates: start: 20161220, end: 20161220

REACTIONS (4)
  - Application site pruritus [Recovered/Resolved]
  - Application site erythema [Recovered/Resolved]
  - Application site exfoliation [Recovering/Resolving]
  - Application site vesicles [Recovered/Resolved]

NARRATIVE: CASE EVENT DATE: 20161214
